FAERS Safety Report 4666483-7 (Version None)
Quarter: 2005Q2

REPORT INFORMATION
  Report Type: 
  Country: None (occurrence: None)
  Receive Date: 20050519
  Receipt Date: 20050228
  Transmission Date: 20051028
  Serious: Yes (Life-Threatening, Disabling, Other)
  Sender: FDA-Public Use
  Company Number: US-BRISTOL-MYERS SQUIBB COMPANY-12880183

PATIENT
  Age: 9 Year
  Sex: Male

DRUGS (7)
  1. ABILIFY [Suspect]
     Indication: AGGRESSION
     Dosage: DRUG STOPPED ON THE 5TH DAY/HELD FOR 2 DAYS/THEN RESTARTED.
     Route: 048
     Dates: start: 20050209, end: 20050219
  2. ABILIFY [Suspect]
     Dosage: DRUG STOPPED ON THE 5TH DAY/HELD FOR 2 DAYS/THEN RESTARTED.
     Route: 048
     Dates: start: 20050209, end: 20050219
  3. CONCERTA [Concomitant]
     Indication: ATTENTION DEFICIT/HYPERACTIVITY DISORDER
     Dates: start: 20040101
  4. CLONIDINE [Concomitant]
     Indication: AGGRESSION
     Dates: start: 20040401
  5. SENOKOT [Concomitant]
  6. MIRALAX [Concomitant]
     Dosage: 3/4 CAPFUL TWICE A DAY
  7. SEROQUEL [Concomitant]
     Dates: end: 20050209

REACTIONS (12)
  - DELUSION [None]
  - DROOLING [None]
  - DYSARTHRIA [None]
  - DYSKINESIA [None]
  - FEELING ABNORMAL [None]
  - HYPOKINESIA [None]
  - INCOHERENT [None]
  - ISCHAEMIC STROKE [None]
  - MYDRIASIS [None]
  - PARANOIA [None]
  - PUPILLARY REFLEX IMPAIRED [None]
  - VISION BLURRED [None]
